FAERS Safety Report 12354545 (Version 5)
Quarter: 2016Q3

REPORT INFORMATION
  Report Type: Report from Study
  Country: IQ (occurrence: IQ)
  Receive Date: 20160511
  Receipt Date: 20160902
  Transmission Date: 20161109
  Serious: Yes (Other)
  Sender: FDA-Public Use
  Company Number: PHHY2012IQ065028

PATIENT
  Age: 61 Year
  Sex: Male

DRUGS (6)
  1. ZYLORIC [Concomitant]
     Active Substance: ALLOPURINOL
     Indication: PRODUCT USED FOR UNKNOWN INDICATION
     Dosage: 1 DF, QD
     Route: 048
     Dates: start: 201403
  2. MEFENAMIC-ACID [Concomitant]
     Active Substance: MEFENAMIC ACID
     Indication: PRODUCT USED FOR UNKNOWN INDICATION
     Dosage: UNK, PRN
     Route: 048
  3. GLIVEC [Suspect]
     Active Substance: IMATINIB MESYLATE
     Indication: CHRONIC MYELOID LEUKAEMIA
     Dosage: 400 MG, QD
     Route: 048
     Dates: start: 20060501
  4. DUSPATALIN ^DUPHAR^ [Concomitant]
     Indication: PRODUCT USED FOR UNKNOWN INDICATION
     Dosage: 1 DF, QD
     Route: 048
  5. DISFLATYL [Concomitant]
     Indication: PRODUCT USED FOR UNKNOWN INDICATION
     Dosage: UNK
     Route: 048
  6. CARDURA [Concomitant]
     Active Substance: DOXAZOSIN MESYLATE
     Indication: PRODUCT USED FOR UNKNOWN INDICATION
     Dosage: 1 DF, Q12H
     Route: 048
     Dates: start: 201403

REACTIONS (24)
  - Abdominal distension [Recovering/Resolving]
  - Hypokalaemia [Recovering/Resolving]
  - Protein deficiency [Not Recovered/Not Resolved]
  - Irritable bowel syndrome [Recovering/Resolving]
  - Diarrhoea [Recovering/Resolving]
  - Blood creatinine increased [Not Recovered/Not Resolved]
  - Abdominal pain [Recovering/Resolving]
  - Haemoglobin decreased [Not Recovered/Not Resolved]
  - Nephrolithiasis [Unknown]
  - Gastric ulcer [Recovering/Resolving]
  - Constipation [Unknown]
  - Memory impairment [Not Recovered/Not Resolved]
  - Pyrexia [Not Recovered/Not Resolved]
  - Hypotension [Not Recovered/Not Resolved]
  - Anxiety [Unknown]
  - Abdominal pain upper [Recovering/Resolving]
  - Diarrhoea [Recovered/Resolved]
  - Benign prostatic hyperplasia [Recovering/Resolving]
  - Phobia [Unknown]
  - Blood uric acid increased [Recovered/Resolved]
  - Influenza [Not Recovered/Not Resolved]
  - Dysuria [Unknown]
  - Weight decreased [Not Recovered/Not Resolved]
  - Faeces discoloured [Recovering/Resolving]

NARRATIVE: CASE EVENT DATE: 201207
